FAERS Safety Report 21294823 (Version 1)
Quarter: 2022Q3

REPORT INFORMATION
  Report Type: Other
  Country: US (occurrence: None)
  Receive Date: 20220905
  Receipt Date: 20220905
  Transmission Date: 20221027
  Serious: Yes (Other)
  Sender: FDA-Public Use
  Company Number: US-ROCHE-3084249

PATIENT
  Sex: Female

DRUGS (4)
  1. XELODA [Suspect]
     Active Substance: CAPECITABINE
     Indication: Brain neoplasm malignant
     Dosage: A DAY FOR14 DAYS FOLLOWED BY 14 DAYS OFF, TAKE 3 TABLETS BY MOUTH 2 TIMES A DAY FOR 14 DAYS, FOLLOWE
     Route: 048
  2. XELODA [Suspect]
     Active Substance: CAPECITABINE
     Indication: Neuroendocrine carcinoma
  3. ONDANSETRON [Concomitant]
     Active Substance: ONDANSETRON
  4. COMPAZINE [Concomitant]
     Active Substance: PROCHLORPERAZINE MALEATE

REACTIONS (2)
  - Off label use [Unknown]
  - Blindness [Unknown]
